FAERS Safety Report 20914257 (Version 1)
Quarter: 2022Q2

REPORT INFORMATION
  Report Type: Spontaneous
  Country: US (occurrence: US)
  Receive Date: 20220604
  Receipt Date: 20220604
  Transmission Date: 20220720
  Serious: No
  Sender: FDA-Public Use
  Company Number: US-SANOFI-01109000

PATIENT

DRUGS (1)
  1. TOUJEO MAX [Suspect]
     Active Substance: INSULIN GLARGINE
     Indication: Type 2 diabetes mellitus
     Dosage: DRUG STRUCTURE DOSAGE : 50 UNITS AND 48 UNITS DRUG INTERVAL DOSAGE : 2 TIMES A DAY DRUG TREATMENT DU

REACTIONS (1)
  - Inappropriate schedule of product administration [Unknown]
